FAERS Safety Report 4997215-0 (Version None)
Quarter: 2006Q2

REPORT INFORMATION
  Report Type: 
  Country: None (occurrence: None)
  Receive Date: 20060505
  Receipt Date: 20060505
  Transmission Date: 20061013
  Serious: Yes (Hospitalization)
  Sender: FDA-Public Use
  Company Number: None

PATIENT
  Sex: Male

DRUGS (2)
  1. PEGINTERFERON [Suspect]
     Indication: HEPATITIS C
     Dosage: 150 MCG   ONCE A WEEK  SQ
     Route: 058
     Dates: start: 20050824, end: 20060504
  2. RIBAVIRIN [Concomitant]

REACTIONS (4)
  - ERYTHEMA [None]
  - SKIN LACERATION [None]
  - STAPHYLOCOCCAL INFECTION [None]
  - SWELLING [None]
